FAERS Safety Report 7980410-6 (Version None)
Quarter: 2011Q4

REPORT INFORMATION
  Report Type: 
  Country: None (occurrence: None)
  Receive Date: 20111214
  Receipt Date: 20111208
  Transmission Date: 20120403
  Serious: Yes (Hospitalization)
  Sender: FDA-Public Use
  Company Number: CH-SANOFI-AVENTIS-2011SA080833

PATIENT
  Age: 49 Year
  Sex: Male

DRUGS (8)
  1. ENOXAPARIN SODIUM [Suspect]
     Indication: ATRIAL FLUTTER
     Route: 058
     Dates: start: 20111031, end: 20111103
  2. MARCUMAR [Suspect]
     Indication: ATRIAL FIBRILLATION
     Route: 048
     Dates: start: 20111026, end: 20111031
  3. MARCUMAR [Suspect]
     Indication: ATRIAL FLUTTER
     Route: 048
     Dates: start: 20111026, end: 20111031
  4. VALPROATE SODIUM [Suspect]
     Route: 048
  5. BILOL [Concomitant]
     Indication: ATRIAL FLUTTER
     Route: 048
     Dates: start: 20111026
  6. BILOL [Concomitant]
     Indication: ATRIAL FIBRILLATION
     Route: 048
     Dates: start: 20111026
  7. ENOXAPARIN SODIUM [Suspect]
     Indication: ATRIAL FIBRILLATION
     Route: 058
     Dates: start: 20111031, end: 20111103
  8. CARBAMAZEPINE [Suspect]
     Route: 048

REACTIONS (3)
  - DRUG INTERACTION [None]
  - GRAND MAL CONVULSION [None]
  - DRUG LEVEL BELOW THERAPEUTIC [None]
